FAERS Safety Report 7700357-X (Version None)
Quarter: 2011Q3

REPORT INFORMATION
  Report Type: 
  Country: None (occurrence: None)
  Receive Date: 20110822
  Receipt Date: 20110817
  Transmission Date: 20111222
  Serious: Yes (Death, Hospitalization, Other)
  Sender: FDA-Public Use
  Company Number: PHEH2010US02407

PATIENT
  Sex: Female

DRUGS (15)
  1. ZOMETA [Suspect]
  2. RADIATION THERAPY [Concomitant]
  3. LANOXIN [Concomitant]
  4. LOVASTATIN [Concomitant]
  5. PLAVIX [Concomitant]
  6. WARFARIN SODIUM [Concomitant]
  7. PLETAL [Concomitant]
  8. LISINOPRIL [Concomitant]
  9. BISACODYL [Concomitant]
  10. DILTIAZEM [Concomitant]
     Indication: HYPERTENSION
  11. FASLODEX [Concomitant]
  12. FUROSEMIDE [Concomitant]
  13. COREG [Concomitant]
     Indication: CARDIAC FAILURE
  14. ARIMIDEX [Concomitant]
  15. LOVASTATIN [Concomitant]

REACTIONS (44)
  - PAIN [None]
  - ARTERIOSCLEROSIS CORONARY ARTERY [None]
  - FATIGUE [None]
  - RENAL ARTERY STENOSIS [None]
  - ATRIOVENTRICULAR BLOCK FIRST DEGREE [None]
  - ARTHRALGIA [None]
  - PROTHROMBIN TIME PROLONGED [None]
  - MALIGNANT MELANOMA IN SITU [None]
  - CHRONIC OBSTRUCTIVE PULMONARY DISEASE [None]
  - LUMBAR SPINAL STENOSIS [None]
  - ATRIAL FIBRILLATION [None]
  - CEREBROVASCULAR ACCIDENT [None]
  - CORONARY ARTERY DISEASE [None]
  - MYOCARDIAL INFARCTION [None]
  - PLEURAL EFFUSION [None]
  - PERIPHERAL VASCULAR DISORDER [None]
  - PAIN IN EXTREMITY [None]
  - VERTEBRAL FORAMINAL STENOSIS [None]
  - OSTEOARTHRITIS [None]
  - CARDIAC FAILURE [None]
  - SCOLIOSIS [None]
  - HAEMOGLOBIN DECREASED [None]
  - DEATH [None]
  - HYPERTENSION [None]
  - ATELECTASIS [None]
  - SPLENIC GRANULOMA [None]
  - MACULAR DEGENERATION [None]
  - INTERMITTENT CLAUDICATION [None]
  - RED BLOOD CELL COUNT DECREASED [None]
  - SKIN ULCER [None]
  - GENERAL PHYSICAL HEALTH DETERIORATION [None]
  - ANXIETY [None]
  - RENAL CYST [None]
  - PANCREATIC CYST [None]
  - FEMORAL ARTERIAL STENOSIS [None]
  - WOUND [None]
  - MITRAL VALVE INCOMPETENCE [None]
  - HYPERLIPIDAEMIA [None]
  - TRICUSPID VALVE INCOMPETENCE [None]
  - OSTEONECROSIS OF JAW [None]
  - DECREASED INTEREST [None]
  - METASTASES TO BONE [None]
  - CARDIOMEGALY [None]
  - OEDEMA PERIPHERAL [None]
